FAERS Safety Report 18888409 (Version 3)
Quarter: 2024Q1

REPORT INFORMATION
  Report Type: Report from Study
  Country: DE (occurrence: DE)
  Receive Date: 20210212
  Receipt Date: 20240114
  Transmission Date: 20240410
  Serious: Yes (Other)
  Sender: FDA-Public Use
  Company Number: DE-ABBVIE-21K-062-3771964-00

PATIENT
  Age: 49 Year
  Sex: Female

DRUGS (4)
  1. SKYRIZI [Suspect]
     Active Substance: RISANKIZUMAB-RZAA
     Indication: Psoriasis
     Route: 058
     Dates: start: 20200708, end: 20200724
  2. SKYRIZI [Suspect]
     Active Substance: RISANKIZUMAB-RZAA
     Route: 058
     Dates: start: 20200724
  3. BUPROPION [Concomitant]
     Active Substance: BUPROPION
     Indication: Anxiety disorder
     Route: 048
     Dates: start: 20200803, end: 20210210
  4. CANDESARTAN [Concomitant]
     Active Substance: CANDESARTAN
     Indication: Hypertension
     Route: 048
     Dates: start: 20201230

REACTIONS (1)
  - Meniscus removal [Recovered/Resolved]

NARRATIVE: CASE EVENT DATE: 20210113
